FAERS Safety Report 21336678 (Version 1)
Quarter: 2022Q3

REPORT INFORMATION
  Report Type: Spontaneous
  Country: US (occurrence: None)
  Receive Date: 20220914
  Receipt Date: 20220914
  Transmission Date: 20221027
  Serious: Yes (Disabling)
  Sender: FDA-Public Use
  Company Number: None

PATIENT
  Age: 48 Year
  Sex: Male
  Weight: 85.5 kg

DRUGS (1)
  1. HYDROXYCHLOROQUINE [Suspect]
     Active Substance: HYDROXYCHLOROQUINE
     Indication: COVID-19 prophylaxis
     Dosage: OTHER QUANTITY : 1 CAPSULE(S);?FREQUENCY : TWICE A DAY;?
     Route: 048
     Dates: start: 20220820, end: 20220823

REACTIONS (13)
  - Insomnia [None]
  - Anxiety [None]
  - Gastrooesophageal reflux disease [None]
  - Sensory disturbance [None]
  - Affect lability [None]
  - Depressed mood [None]
  - Skin burning sensation [None]
  - Tension [None]
  - Myalgia [None]
  - Arthralgia [None]
  - Chest pain [None]
  - Panic attack [None]
  - Insomnia [None]

NARRATIVE: CASE EVENT DATE: 20220824
